FAERS Safety Report 5573897-X (Version None)
Quarter: 2007Q4

REPORT INFORMATION
  Report Type: 
  Country: None (occurrence: None)
  Receive Date: 20071212
  Receipt Date: 20071126
  Transmission Date: 20080405
  Serious: Yes (Life-Threatening)
  Sender: FDA-Public Use
  Company Number: 164678ISR

PATIENT
  Sex: Male

DRUGS (1)
  1. ALPRAZOLAM [Suspect]

REACTIONS (2)
  - COOMBS NEGATIVE HAEMOLYTIC ANAEMIA [None]
  - THROMBOCYTOPENIA [None]
